FAERS Safety Report 26116301 (Version 1)
Quarter: 2025Q4

REPORT INFORMATION
  Report Type: Spontaneous
  Country: EU (occurrence: EU)
  Receive Date: 20251203
  Receipt Date: 20251203
  Transmission Date: 20260117
  Serious: Yes (Other)
  Sender: MYLAN
  Company Number: EU-MYLANLABS-2025M1102321

PATIENT
  Age: 8 Decade
  Sex: Female

DRUGS (8)
  1. METHOTREXATE [Suspect]
     Active Substance: METHOTREXATE
     Indication: Cutaneous T-cell lymphoma stage IV
     Dosage: UNK
  2. METHOTREXATE [Suspect]
     Active Substance: METHOTREXATE
     Dosage: UNK
     Route: 065
  3. METHOTREXATE [Suspect]
     Active Substance: METHOTREXATE
     Dosage: UNK
     Route: 065
  4. METHOTREXATE [Suspect]
     Active Substance: METHOTREXATE
     Dosage: UNK
  5. BEXAROTENE [Suspect]
     Active Substance: BEXAROTENE
     Indication: Cutaneous T-cell lymphoma stage IV
     Dosage: UNK
  6. BEXAROTENE [Suspect]
     Active Substance: BEXAROTENE
     Dosage: UNK
     Route: 065
  7. BEXAROTENE [Suspect]
     Active Substance: BEXAROTENE
     Dosage: UNK
     Route: 065
  8. BEXAROTENE [Suspect]
     Active Substance: BEXAROTENE
     Dosage: UNK

REACTIONS (1)
  - Drug ineffective [Unknown]
